FAERS Safety Report 4848554-5 (Version None)
Quarter: 2005Q4

REPORT INFORMATION
  Report Type: 
  Country: None (occurrence: None)
  Receive Date: 20051206
  Receipt Date: 20051128
  Transmission Date: 20060501
  Serious: Yes (Other)
  Sender: FDA-Public Use
  Company Number: T05-USA-05524-01

PATIENT
  Age: 83 Year
  Sex: Male
  Weight: 69.8086 kg

DRUGS (4)
  1. MEMANTINE HCL [Suspect]
     Indication: DEMENTIA ALZHEIMER'S TYPE
     Dosage: 10 MG QD PO
     Route: 048
     Dates: start: 20051025, end: 20051116
  2. MEMANTINE HCL [Suspect]
     Indication: DEMENTIA ALZHEIMER'S TYPE
     Dosage: 5 MG QD PO
     Route: 048
  3. ARICEPT [Concomitant]
  4. LISINOPRIL [Concomitant]

REACTIONS (8)
  - ABNORMAL BEHAVIOUR [None]
  - ANGER [None]
  - ANXIETY [None]
  - DISORIENTATION [None]
  - IRRITABILITY [None]
  - NIGHTMARE [None]
  - SOMNOLENCE [None]
  - SPEECH DISORDER [None]
